FAERS Safety Report 7419820-4 (Version None)
Quarter: 2011Q2

REPORT INFORMATION
  Report Type: 
  Country: None (occurrence: None)
  Receive Date: 20110413
  Receipt Date: 20110413
  Transmission Date: 20111010
  Serious: Yes (Hospitalization)
  Sender: FDA-Public Use
  Company Number: None

PATIENT
  Age: 49 Year
  Sex: Male
  Weight: 82.1011 kg

DRUGS (1)
  1. MDX-010 10MG/KG BMS [Suspect]
     Indication: MALIGNANT MELANOMA
     Dosage: 900MG ONCE IV BOLUS
     Route: 040
     Dates: start: 20110315, end: 20110315

REACTIONS (2)
  - CLOSTRIDIUM DIFFICILE COLITIS [None]
  - MALAISE [None]
